FAERS Safety Report 6965260-1 (Version None)
Quarter: 2010Q3

REPORT INFORMATION
  Report Type: 
  Country: None (occurrence: None)
  Receive Date: 20100901
  Receipt Date: 20100826
  Transmission Date: 20110219
  Serious: Yes (Death, Hospitalization, Other)
  Sender: FDA-Public Use
  Company Number: 2010US003181

PATIENT
  Age: 62 Year
  Sex: Female
  Weight: 69 kg

DRUGS (10)
  1. PROGRAF [Suspect]
     Indication: RENAL TRANSPLANT
     Dosage: 0.5 MG, BID, ORAL
     Route: 048
     Dates: start: 20080701, end: 20100301
  2. LASIX [Concomitant]
  3. VALCYTE [Concomitant]
  4. SODIUM BICARBONATE [Concomitant]
  5. MYFORTIC [Concomitant]
  6. PREDNISONE [Concomitant]
  7. ACIPHEX [Concomitant]
  8. LABETALOL HCL [Concomitant]
  9. VITAMIN D [Concomitant]
  10. ASPIRIN [Concomitant]

REACTIONS (13)
  - ATELECTASIS [None]
  - ATRIAL FIBRILLATION [None]
  - BLOOD PRESSURE INCREASED [None]
  - CHEST PAIN [None]
  - HYPOXIA [None]
  - KIDNEY TRANSPLANT REJECTION [None]
  - LUNG CONSOLIDATION [None]
  - PERICARDIAL EFFUSION [None]
  - PLEURAL EFFUSION [None]
  - PNEUMONIA [None]
  - PULMONARY OEDEMA [None]
  - SEPTIC SHOCK [None]
  - TACHYCARDIA [None]
